FAERS Safety Report 8057712-0 (Version None)
Quarter: 2012Q1

REPORT INFORMATION
  Report Type: 
  Country: None (occurrence: None)
  Receive Date: 20120120
  Receipt Date: 20120110
  Transmission Date: 20120608
  Serious: No
  Sender: FDA-Public Use
  Company Number: US-BIOGENIDEC-2012BI001333

PATIENT
  Age: 48 Year
  Sex: Female

DRUGS (3)
  1. STEROIDS (NOS) [Concomitant]
  2. TYSABRI [Suspect]
     Indication: MULTIPLE SCLEROSIS
     Route: 042
     Dates: start: 20111117
  3. SOLU-MEDROL [Concomitant]

REACTIONS (2)
  - NAUSEA [None]
  - FATIGUE [None]
